FAERS Safety Report 9731463 (Version 2)
Quarter: 2014Q1

REPORT INFORMATION
  Report Type: Report from Study
  Country: JP (occurrence: JP)
  Receive Date: 20131203
  Receipt Date: 20140313
  Transmission Date: 20141002
  Serious: No
  Sender: FDA-Public Use
  Company Number: JP-SA-2013SA121723

PATIENT
  Age: 35 Year
  Sex: Male
  Weight: 60.3 kg

DRUGS (6)
  1. THYMOGLOBULINE [Suspect]
     Indication: TRANSPLANT REJECTION
     Route: 042
     Dates: start: 20130215, end: 20130224
  2. MEDROL [Suspect]
     Indication: IMMUNOSUPPRESSANT DRUG THERAPY
     Dosage: 4-8 MG/DAY
     Route: 048
     Dates: start: 20130215
  3. MEVALOTIN [Concomitant]
     Indication: HYPERLIPIDAEMIA
     Route: 048
     Dates: start: 20121018
  4. TACROLIMUS [Concomitant]
     Indication: IMMUNOSUPPRESSANT DRUG THERAPY
     Dosage: 3-4 MG/DAY
     Route: 048
     Dates: start: 20130215
  5. MYCOPHENOLATE MOFETIL [Concomitant]
     Indication: IMMUNOSUPPRESSANT DRUG THERAPY
     Route: 048
     Dates: start: 20130215
  6. FEBURIC [Concomitant]
     Indication: HYPERURICAEMIA
     Route: 048
     Dates: start: 20130329

REACTIONS (1)
  - Groin pain [Recovering/Resolving]
